FAERS Safety Report 9098105 (Version 3)
Quarter: 2013Q1

REPORT INFORMATION
  Report Type: Spontaneous
  Country: GB (occurrence: GB)
  Receive Date: 20130213
  Receipt Date: 20130328
  Transmission Date: 20140127
  Serious: Yes (Hospitalization, Disabling)
  Sender: FDA-Public Use
  Company Number: PHFR2013GB000758

PATIENT
  Sex: Female
  Weight: 109 kg

DRUGS (2)
  1. CLOZARIL [Suspect]
     Indication: SCHIZOPHRENIA
     Dosage: 275 UKN, UNK
     Route: 048
     Dates: start: 20100701
  2. SODIUM VALPROATE [Concomitant]
     Indication: MENTAL DISORDER
     Dosage: 400 UKN, UNK
     Route: 048

REACTIONS (2)
  - Lower respiratory tract infection [Recovering/Resolving]
  - Chronic obstructive pulmonary disease [Recovering/Resolving]
